FAERS Safety Report 4577142-3 (Version None)
Quarter: 2005Q1

REPORT INFORMATION
  Report Type: 
  Country: None (occurrence: None)
  Receive Date: 20050210
  Receipt Date: 20050128
  Transmission Date: 20050727
  Serious: Yes (Other)
  Sender: FDA-Public Use
  Company Number: US-ROCHE-393851

PATIENT
  Age: 65 Year
  Sex: Male
  Weight: 71.2 kg

DRUGS (6)
  1. CAPECITABINE [Suspect]
     Dosage: FOR 14 DAYS PER CYCLE.
     Route: 048
  2. ERLOTINIB [Suspect]
     Dosage: FOR 14 DAYS PER CYCLE.
     Route: 048
  3. ASPIRIN [Concomitant]
     Indication: PAIN
  4. FLOMAX [Concomitant]
  5. ALDACTONE [Concomitant]
  6. LASIX [Concomitant]

REACTIONS (16)
  - ABDOMINAL PAIN [None]
  - DEHYDRATION [None]
  - DIARRHOEA [None]
  - DRUG INTERACTION [None]
  - DRUG TOXICITY [None]
  - FATIGUE [None]
  - GAIT DISTURBANCE [None]
  - GENERAL PHYSICAL HEALTH DETERIORATION [None]
  - MUCOSAL INFLAMMATION [None]
  - NAIL DISORDER [None]
  - ORAL INTAKE REDUCED [None]
  - PALMAR-PLANTAR ERYTHRODYSAESTHESIA SYNDROME [None]
  - RASH [None]
  - SKIN EXFOLIATION [None]
  - STOMATITIS [None]
  - WOUND SECRETION [None]
